FAERS Safety Report 10627123 (Version 3)
Quarter: 2015Q3

REPORT INFORMATION
  Report Type: Report from Study
  Country: US (occurrence: US)
  Receive Date: 20141204
  Receipt Date: 20150818
  Transmission Date: 20151125
  Serious: No
  Sender: FDA-Public Use
  Company Number: US-GILEAD-2014-0125113

PATIENT
  Age: 56 Year
  Sex: Male

DRUGS (2)
  1. AMBRISENTAN [Suspect]
     Active Substance: AMBRISENTAN
     Indication: FOCAL SEGMENTAL GLOMERULOSCLEROSIS
     Dosage: 5 MG, QD
     Route: 065
     Dates: start: 20140926, end: 20141118
  2. AMBRISENTAN [Suspect]
     Active Substance: AMBRISENTAN
     Indication: PROTEINURIA

REACTIONS (2)
  - Drug ineffective [Unknown]
  - Off label use [Unknown]
